FAERS Safety Report 22382387 (Version 1)
Quarter: 2023Q2

REPORT INFORMATION
  Report Type: Spontaneous
  Country: IT (occurrence: IT)
  Receive Date: 20230530
  Receipt Date: 20230530
  Transmission Date: 20230721
  Serious: Yes (Other)
  Sender: FDA-Public Use
  Company Number: IT-STRIDES ARCOLAB LIMITED-2023SP007893

PATIENT
  Age: 37 Year
  Sex: Female

DRUGS (3)
  1. PREDNISOLONE [Suspect]
     Active Substance: PREDNISOLONE
     Indication: Erythema
     Dosage: 25 MILLIGRAM, A SINGLE ADMINISTRATION
     Route: 048
  2. Aircort [Concomitant]
     Indication: Product used for unknown indication
     Dosage: UNK
     Route: 065
  3. Betametasone zentiva [Concomitant]
     Indication: Dermatitis
     Dosage: UNK
     Route: 065

REACTIONS (1)
  - Systemic contact dermatitis [Recovered/Resolved]
